FAERS Safety Report 25085650 (Version 1)
Quarter: 2025Q1

REPORT INFORMATION
  Report Type: Report from Study
  Country: US (occurrence: US)
  Receive Date: 20250317
  Receipt Date: 20250317
  Transmission Date: 20250409
  Serious: Yes (Hospitalization, Other)
  Sender: AGIOS PHARMACEUTICALS
  Company Number: US-AGIOS-2501US04075

PATIENT
  Age: 32 Year
  Sex: Female

DRUGS (1)
  1. MITAPIVAT [Suspect]
     Active Substance: MITAPIVAT
     Indication: Pyruvate kinase deficiency anaemia
     Route: 048
     Dates: start: 20230201

REACTIONS (3)
  - Pneumonia [Unknown]
  - Haemoglobin decreased [Unknown]
  - Norovirus infection [Unknown]

NARRATIVE: CASE EVENT DATE: 20241231
